FAERS Safety Report 4456402-0 (Version None)
Quarter: 2004Q3

REPORT INFORMATION
  Report Type: 
  Country: None (occurrence: None)
  Receive Date: 20040902
  Receipt Date: 20040520
  Transmission Date: 20050211
  Serious: No
  Sender: FDA-Public Use
  Company Number: 200413309BWH

PATIENT
  Age: 70 Year
  Sex: Male
  Weight: 100.2449 kg

DRUGS (11)
  1. LEVITRA [Suspect]
     Indication: ERECTILE DYSFUNCTION
     Dosage: 10 MG, QD,ORAL
     Route: 048
     Dates: start: 20040212
  2. LEVITRA [Suspect]
     Indication: ERECTILE DYSFUNCTION
     Dosage: 10 MG, QD,ORAL
     Route: 048
     Dates: start: 20040213
  3. LEVITRA [Suspect]
     Indication: ERECTILE DYSFUNCTION
     Dosage: 10 MG, QD,ORAL
     Route: 048
     Dates: start: 20040214
  4. GLUCOVANCE [Concomitant]
  5. ECOTRIN [Concomitant]
  6. PLETAL [Concomitant]
  7. VERAPAMIL [Concomitant]
  8. ACTOS [Concomitant]
  9. TRICOR [Concomitant]
  10. ULTRACET [Concomitant]
  11. VIAGRA [Concomitant]

REACTIONS (2)
  - ERECTILE DYSFUNCTION [None]
  - TESTICULAR PAIN [None]
